FAERS Safety Report 12383099 (Version 7)
Quarter: 2016Q4

REPORT INFORMATION
  Report Type: Report from Study
  Country: US (occurrence: US)
  Receive Date: 20160518
  Receipt Date: 20161213
  Transmission Date: 20170207
  Serious: Yes (Hospitalization)
  Sender: FDA-Public Use
  Company Number: US-ACTELION-A-NJ2015-125360

PATIENT
  Age: 53 Year
  Sex: Female

DRUGS (5)
  1. REMODULIN [Concomitant]
     Active Substance: TREPROSTINIL
  2. TYVASO [Concomitant]
     Active Substance: TREPROSTINIL
  3. OPSUMIT [Suspect]
     Active Substance: MACITENTAN
     Indication: PULMONARY ARTERIAL HYPERTENSION
     Dosage: 10 MG, QD
     Route: 048
     Dates: start: 20141119
  4. OPSUMIT [Suspect]
     Active Substance: MACITENTAN
     Dosage: 10 MG, QD
     Route: 048
  5. REVATIO [Concomitant]
     Active Substance: SILDENAFIL CITRATE

REACTIONS (32)
  - Transfusion [Recovered/Resolved]
  - Abnormal precordial movement [Not Recovered/Not Resolved]
  - Induration [Not Recovered/Not Resolved]
  - Mental status changes [Not Recovered/Not Resolved]
  - Wound haemorrhage [Recovered/Resolved]
  - Thrombocytopenia [Unknown]
  - Decreased activity [Not Recovered/Not Resolved]
  - Oedema [Not Recovered/Not Resolved]
  - Anaemia [Recovered/Resolved]
  - Nausea [Not Recovered/Not Resolved]
  - Limb injury [Not Recovered/Not Resolved]
  - Infection [Unknown]
  - Haematoma [Unknown]
  - Pulmonary arterial hypertension [Unknown]
  - Fluid retention [Unknown]
  - Post procedural complication [Unknown]
  - Hypoxia [Unknown]
  - Crepitations [Recovered/Resolved]
  - Contusion [Not Recovered/Not Resolved]
  - Cellulitis [Unknown]
  - Localised infection [Recovered/Resolved]
  - Hypotension [Unknown]
  - Sleep disorder [Not Recovered/Not Resolved]
  - Fluid overload [Unknown]
  - Electrolyte imbalance [Unknown]
  - Debridement [Unknown]
  - Haemoglobin decreased [Recovered/Resolved]
  - Nasal congestion [Not Recovered/Not Resolved]
  - Hypokinesia [Not Recovered/Not Resolved]
  - Flushing [Not Recovered/Not Resolved]
  - Abdominal distension [Unknown]
  - Erythema [Not Recovered/Not Resolved]

NARRATIVE: CASE EVENT DATE: 2015
